FAERS Safety Report 8495295-1 (Version None)
Quarter: 2012Q3

REPORT INFORMATION
  Report Type: 
  Country: None (occurrence: None)
  Receive Date: 20120709
  Receipt Date: 20120629
  Transmission Date: 20120928
  Serious: Yes (Other)
  Sender: FDA-Public Use
  Company Number: US-JNJFOC-20120701417

PATIENT

DRUGS (17)
  1. BLEOMYCIN SULFATE [Suspect]
     Dosage: SALVAGE CHEMOTHERAPY
     Route: 065
  2. ETOPOSIDE [Suspect]
     Route: 065
  3. VINORELBINE [Suspect]
     Indication: HODGKIN'S DISEASE
     Route: 065
  4. CARBOPLATIN [Suspect]
     Indication: HODGKIN'S DISEASE
     Route: 065
  5. PREDNISONE [Suspect]
     Indication: HODGKIN'S DISEASE
     Route: 065
  6. IFOSFAMIDE [Suspect]
     Indication: HODGKIN'S DISEASE
     Route: 065
  7. DOXORUBICIN HCL [Suspect]
     Dosage: SALVAGE CHEMOTHERAPY
     Route: 042
  8. RADIOTHERAPY [Suspect]
     Indication: HODGKIN'S DISEASE
     Route: 065
  9. ETOPOSIDE [Suspect]
     Indication: HODGKIN'S DISEASE
     Route: 065
  10. CYCLOPHOSPHAMIDE [Suspect]
     Indication: HODGKIN'S DISEASE
     Route: 065
  11. DOXORUBICIN HCL [Suspect]
     Indication: HODGKIN'S DISEASE
     Route: 042
  12. DACARBAZINE [Suspect]
     Indication: HODGKIN'S DISEASE
     Route: 065
  13. GEMCITABINE [Suspect]
     Indication: HODGKIN'S DISEASE
     Route: 065
  14. VINCRISTINE [Suspect]
     Indication: HODGKIN'S DISEASE
     Route: 065
  15. PROCARBAZINE HYDROCHLORIDE [Suspect]
     Indication: HODGKIN'S DISEASE
     Route: 065
  16. BLEOMYCIN SULFATE [Suspect]
     Indication: HODGKIN'S DISEASE
     Route: 065
  17. VINBLASTINE SULFATE [Suspect]
     Indication: HODGKIN'S DISEASE
     Route: 065

REACTIONS (2)
  - RADIATION PNEUMONITIS [None]
  - HODGKIN'S DISEASE [None]
